FAERS Safety Report 16263915 (Version 1)
Quarter: 2019Q2

REPORT INFORMATION
  Report Type: Spontaneous
  Country: US (occurrence: US)
  Receive Date: 20190502
  Receipt Date: 20190502
  Transmission Date: 20190711
  Serious: Yes (Other)
  Sender: FDA-Public Use
  Company Number: US-GLAXOSMITHKLINE-US2019GSK034279

PATIENT

DRUGS (5)
  1. ROPINIROLE. [Suspect]
     Active Substance: ROPINIROLE
     Indication: PERIPHERAL SWELLING
  2. ROPINIROLE. [Suspect]
     Active Substance: ROPINIROLE
     Indication: PAIN IN EXTREMITY
  3. ROPINIROLE. [Suspect]
     Active Substance: ROPINIROLE
     Indication: RESTLESS LEGS SYNDROME
     Dosage: UNK
  4. ROPINIROLE. [Suspect]
     Active Substance: ROPINIROLE
     Indication: MUSCLE SPASMS
  5. ROPINIROLE. [Suspect]
     Active Substance: ROPINIROLE
     Indication: MUSCLE SPASMS

REACTIONS (5)
  - Asthenia [Unknown]
  - Weight increased [Unknown]
  - Deep vein thrombosis [Recovered/Resolved]
  - Constipation [Unknown]
  - Drug ineffective [Unknown]
